FAERS Safety Report 4318924-2 (Version None)
Quarter: 2004Q1

REPORT INFORMATION
  Report Type: 
  Country: None (occurrence: None)
  Receive Date: 20040317
  Receipt Date: 20040317
  Transmission Date: 20041129
  Serious: No
  Sender: FDA-Public Use
  Company Number: None

PATIENT
  Age: 4 Year
  Sex: Male
  Weight: 21 kg

DRUGS (6)
  1. PANGLOBULIN [Suspect]
     Indication: KAWASAKI'S DISEASE
     Dosage: 42 G (40G/4HR) IV
     Route: 042
     Dates: start: 20031211
  2. AMOXICILLIN SUSPENSION [Concomitant]
  3. CETRIAXONE [Concomitant]
  4. RANITIDINE [Concomitant]
  5. POLYETHYLENE GLYCOL [Concomitant]
  6. CEFEPIME [Concomitant]

REACTIONS (3)
  - DYSURIA [None]
  - MENTAL STATUS CHANGES [None]
  - RENAL FAILURE [None]
